FAERS Safety Report 5827100-3 (Version None)
Quarter: 2008Q3

REPORT INFORMATION
  Report Type: 
  Country: None (occurrence: None)
  Receive Date: 20080729
  Receipt Date: 20080729
  Transmission Date: 20090109
  Serious: Yes (Other)
  Sender: FDA-Public Use
  Company Number: None

PATIENT
  Age: 54 Year
  Sex: Female
  Weight: 79.3795 kg

DRUGS (1)
  1. BONIVA [Suspect]
     Indication: OSTEOPENIA
     Dates: start: 20080716, end: 20080716

REACTIONS (4)
  - BACK PAIN [None]
  - DYSPEPSIA [None]
  - IMPAIRED WORK ABILITY [None]
  - NAUSEA [None]
